FAERS Safety Report 11995832 (Version 1)
Quarter: 2016Q1

REPORT INFORMATION
  Report Type: Spontaneous
  Country: SI (occurrence: SI)
  Receive Date: 20160203
  Receipt Date: 20160203
  Transmission Date: 20160526
  Serious: Yes (Other)
  Sender: FDA-Public Use
  Company Number: SI-TEVA-629409ISR

PATIENT
  Age: 53 Year
  Sex: Female

DRUGS (1)
  1. CARBOPLATIN PLIVA 50 [Suspect]
     Active Substance: CARBOPLATIN
     Indication: OVARIAN CANCER
     Dosage: SHE ACTUALLY RECEIVED 415 ML OF THE INFUSION
     Route: 042
     Dates: start: 20160107, end: 20160107

REACTIONS (3)
  - Oedema mouth [None]
  - Infusion related reaction [Recovered/Resolved]
  - Pruritus [None]

NARRATIVE: CASE EVENT DATE: 20160107
